FAERS Safety Report 18476529 (Version 4)
Quarter: 2021Q2

REPORT INFORMATION
  Report Type: Spontaneous
  Country: DE (occurrence: DE)
  Receive Date: 20201107
  Receipt Date: 20210527
  Transmission Date: 20210717
  Serious: Yes (Life-Threatening, Hospitalization, Other)
  Sender: FDA-Public Use
  Company Number: DE-ACCORD-207387

PATIENT
  Age: 81 Year
  Sex: Male
  Weight: 95 kg

DRUGS (8)
  1. ALLOPURINOL. [Suspect]
     Active Substance: ALLOPURINOL
     Indication: PRODUCT USED FOR UNKNOWN INDICATION
     Route: 048
  2. TENSOFLUX [Interacting]
     Active Substance: AMILORIDE\BENDROFLUMETHIAZIDE
     Indication: PRODUCT USED FOR UNKNOWN INDICATION
     Route: 048
  3. PHENPROCOUMON [Concomitant]
     Active Substance: PHENPROCOUMON
     Indication: ANTICOAGULANT THERAPY
     Dosage: STRENGTH:?3 MG
     Route: 048
     Dates: start: 20190806
  4. RAMIPRIL. [Interacting]
     Active Substance: RAMIPRIL
     Indication: HYPERTENSION
     Dosage: STRENGTH:?2.5 MG
     Route: 048
  5. ALNA [Interacting]
     Active Substance: TAMSULOSIN HYDROCHLORIDE
     Indication: BENIGN PROSTATIC HYPERPLASIA
     Dosage: STRENGTH:?0.4 MG
     Route: 048
  6. METOPROLOL. [Concomitant]
     Active Substance: METOPROLOL
     Indication: HYPERTENSION
     Dosage: STRENGTH:?47.5 MG
     Route: 048
  7. OMNIC [Interacting]
     Active Substance: TAMSULOSIN HYDROCHLORIDE
     Indication: BENIGN PROSTATIC HYPERPLASIA
     Dosage: STRENGTH:?0.4 MG
     Route: 048
  8. METFORMIN [Concomitant]
     Active Substance: METFORMIN HYDROCHLORIDE
     Indication: DIABETES MELLITUS
     Dosage: STRENGTH:?500 MG
     Route: 048

REACTIONS (5)
  - Toxic epidermal necrolysis [Recovered/Resolved]
  - Wound haemorrhage [Recovering/Resolving]
  - Stevens-Johnson syndrome [Recovered/Resolved]
  - Drug interaction [Unknown]
  - Self-medication [Unknown]

NARRATIVE: CASE EVENT DATE: 2019
